FAERS Safety Report 4954376-7 (Version None)
Quarter: 2006Q1

REPORT INFORMATION
  Report Type: 
  Country: None (occurrence: None)
  Receive Date: 20060322
  Receipt Date: 20060313
  Transmission Date: 20060701
  Serious: Yes (Death, Other)
  Sender: FDA-Public Use
  Company Number: 2006026928

PATIENT
  Age: 73 Year
  Sex: Female
  Weight: 66 kg

DRUGS (16)
  1. LYRICA [Suspect]
     Indication: PAIN
     Dosage: 150 MG (UNKNOWN), ORAL
     Route: 048
     Dates: start: 20060201
  2. DUROGESIC (FENTANYL) [Suspect]
     Indication: PAIN
     Dosage: 75 MCG (1 D), TOPICAL
     Route: 061
     Dates: start: 20060113
  3. AMITRIPTYLINE (AMITRIPTYLINE) [Concomitant]
  4. AMARYL [Concomitant]
  5. ALLOPURINOL [Concomitant]
  6. ACETYLSALICYLIC ACID SRT [Concomitant]
  7. VENTOLAIR (BECLOMETASONE DIPROPIONATE) [Concomitant]
  8. AZATHIOPRINE SODIUM [Concomitant]
  9. PREDNISOLONE [Concomitant]
  10. FOSAMAX [Concomitant]
  11. CALCIUM CARBONATE (CALCIUM CARBONATE) [Concomitant]
  12. ACIMETHIN (METHIONINE) [Concomitant]
  13. SELEGELINE HYDROCHLORIDE [Concomitant]
  14. SIFROL (PRAMIPEXOLE DIHYDROCHLORIDE) [Concomitant]
  15. SINEMET [Concomitant]
  16. DOMPERIDONE (DOMPERIDONE) [Concomitant]

REACTIONS (10)
  - ACUTE ABDOMEN [None]
  - BLOOD PRESSURE IMMEASURABLE [None]
  - COMA [None]
  - FLATULENCE [None]
  - GASTROINTESTINAL HYPERMOTILITY [None]
  - ILEUS [None]
  - INTESTINAL OBSTRUCTION [None]
  - INTESTINAL PERFORATION [None]
  - SEPTIC SHOCK [None]
  - URINARY TRACT INFECTION [None]
